FAERS Safety Report 8185365-X (Version None)
Quarter: 2012Q1

REPORT INFORMATION
  Report Type: 
  Country: None (occurrence: None)
  Receive Date: 20120305
  Receipt Date: 20120228
  Transmission Date: 20120608
  Serious: Yes (Other)
  Sender: FDA-Public Use
  Company Number: PHHY2012MX018629

PATIENT
  Sex: Female

DRUGS (2)
  1. PAROXETINE HCL [Concomitant]
     Indication: DEPRESSION
  2. DIOVAN HCT [Suspect]
     Indication: HYPERTENSION
     Dosage: 1 DF (160/25 MG), DAILY
     Dates: start: 20050201

REACTIONS (1)
  - CATARACT [None]
